FAERS Safety Report 21212482 (Version 1)
Quarter: 2022Q3

REPORT INFORMATION
  Report Type: Spontaneous
  Country: US (occurrence: None)
  Receive Date: 20220812
  Receipt Date: 20220812
  Transmission Date: 20221027
  Serious: No
  Sender: FDA-Public Use
  Company Number: None

PATIENT
  Age: 61 Year
  Sex: Male
  Weight: 80 kg

DRUGS (1)
  1. WARFARIN SODIUM [Suspect]
     Active Substance: WARFARIN SODIUM
     Indication: Atrial fibrillation
     Dates: start: 20200925, end: 20211208

REACTIONS (6)
  - Chest wall haematoma [None]
  - Blood loss anaemia [None]
  - Hypovolaemic shock [None]
  - International normalised ratio increased [None]
  - Infusion site extravasation [None]
  - Haemorrhage [None]

NARRATIVE: CASE EVENT DATE: 20211208
